FAERS Safety Report 14680679 (Version 2)
Quarter: 2018Q1

REPORT INFORMATION
  Report Type: Report from Study
  Country: US (occurrence: US)
  Receive Date: 20180326
  Receipt Date: 20180326
  Transmission Date: 20180509
  Serious: Yes (Death, Other)
  Sender: FDA-Public Use
  Company Number: US-BAYER-2018-052456

PATIENT

DRUGS (2)
  1. ASPIRIN. [Suspect]
     Active Substance: ASPIRIN
     Dosage: UNK
  2. CLOPIDOGREL [Interacting]
     Active Substance: CLOPIDOGREL BISULFATE
     Dosage: UNK

REACTIONS (9)
  - Basal ganglia haemorrhage [Fatal]
  - Hydrocephalus [Fatal]
  - Intraventricular haemorrhage [Fatal]
  - Hemiparesis [None]
  - Unresponsive to stimuli [None]
  - Brain oedema [None]
  - Haemorrhagic transformation stroke [None]
  - Contraindicated product administered [Fatal]
  - Labelled drug-drug interaction medication error [Fatal]
